FAERS Safety Report 24143928 (Version 1)
Quarter: 2024Q3

REPORT INFORMATION
  Report Type: Spontaneous
  Country: US (occurrence: US)
  Receive Date: 20240727
  Receipt Date: 20240727
  Transmission Date: 20241016
  Serious: No
  Sender: SANOFI AVENTIS
  Company Number: US-SA-2024SA216701

PATIENT
  Age: 73 Year
  Sex: Female

DRUGS (2)
  1. DUPIXENT [Suspect]
     Active Substance: DUPILUMAB
     Indication: Neurodermatitis
     Dosage: 600 MG, 1X
     Route: 065
     Dates: start: 202406, end: 202406
  2. DUPIXENT [Suspect]
     Active Substance: DUPILUMAB
     Dosage: 300 MG, QOW
     Dates: start: 2024

REACTIONS (1)
  - Injection site bruising [Recovered/Resolved]

NARRATIVE: CASE EVENT DATE: 20240101
